FAERS Safety Report 7803346-X (Version None)
Quarter: 2011Q4

REPORT INFORMATION
  Report Type: 
  Country: None (occurrence: None)
  Receive Date: 20111007
  Receipt Date: 20110927
  Transmission Date: 20120403
  Serious: Yes (Other)
  Sender: FDA-Public Use
  Company Number: PHHY2011DE71922

PATIENT
  Sex: Female

DRUGS (1)
  1. GILENYA [Suspect]
     Indication: MULTIPLE SCLEROSIS
     Dosage: 0.5 MG, PER DAY
     Route: 048
     Dates: start: 20110713

REACTIONS (5)
  - CHEST PAIN [None]
  - URINARY TRACT INFECTION [None]
  - LACRIMATION INCREASED [None]
  - BLOOD TEST ABNORMAL [None]
  - INTRAOCULAR PRESSURE INCREASED [None]
